FAERS Safety Report 6521218-8 (Version None)
Quarter: 2009Q4

REPORT INFORMATION
  Report Type: 
  Country: None (occurrence: None)
  Receive Date: 20091230
  Receipt Date: 20091218
  Transmission Date: 20100525
  Serious: Yes (Hospitalization, Other)
  Sender: FDA-Public Use
  Company Number: US-BIOGENIDEC-2009BI022436

PATIENT
  Age: 45 Year
  Sex: Female

DRUGS (1)
  1. TYSABRI [Suspect]
     Indication: MULTIPLE SCLEROSIS
     Route: 042
     Dates: start: 20070315

REACTIONS (12)
  - AMNESIA [None]
  - BLOOD POTASSIUM DECREASED [None]
  - COLLAPSE OF LUNG [None]
  - CONCUSSION [None]
  - EMPHYSEMA [None]
  - OVARIAN CANCER [None]
  - OVARIAN CYST [None]
  - RENAL CYST [None]
  - RIB FRACTURE [None]
  - ROAD TRAFFIC ACCIDENT [None]
  - STERNAL FRACTURE [None]
  - VISUAL ACUITY REDUCED [None]
